FAERS Safety Report 9632891 (Version 1)
Quarter: 2013Q4

REPORT INFORMATION
  Report Type: Report from Study
  Country: JP (occurrence: JP)
  Receive Date: 20131018
  Receipt Date: 20131018
  Transmission Date: 20140711
  Serious: Yes (Hospitalization)
  Sender: FDA-Public Use
  Company Number: JP-AMGEN-JPNCT2012084569

PATIENT
  Age: 69 Year
  Sex: Male

DRUGS (16)
  1. DARBEPOETIN ALFA [Suspect]
     Indication: NEPHROGENIC ANAEMIA
     Dosage: 15 MUG, QWK
     Route: 040
     Dates: start: 20070911
  2. MIMPARA [Concomitant]
     Indication: HYPERPARATHYROIDISM SECONDARY
     Dosage: UNK
     Route: 048
  3. ARGAMATE [Concomitant]
     Indication: HYPERKALAEMIA
     Dosage: UNK
     Route: 048
  4. ITOROL [Concomitant]
     Indication: ANGINA PECTORIS
     Dosage: UNK
     Route: 048
  5. ANPLAG [Concomitant]
     Indication: PERIPHERAL ARTERIAL OCCLUSIVE DISEASE
     Dosage: UNK
     Route: 048
  6. OMEPRAL                            /00661201/ [Concomitant]
     Indication: GASTRITIS
     Dosage: UNK
     Route: 048
  7. CALTAN [Concomitant]
     Indication: HYPERPHOSPHATAEMIA
     Dosage: UNK
     Route: 048
  8. NU-LOTAN [Concomitant]
     Indication: HYPERTENSION
     Dosage: UNK
     Route: 048
  9. PLAVIX [Concomitant]
     Indication: CEREBRAL INFARCTION
     Dosage: UNK
     Route: 048
  10. RIVOTRIL [Concomitant]
     Indication: RESTLESS LEGS SYNDROME
     Dosage: UNK
     Route: 048
  11. PLETAAL [Concomitant]
     Indication: PERIPHERAL ARTERIAL OCCLUSIVE DISEASE
     Dosage: UNK
     Route: 048
  12. PURSENNID                          /00142207/ [Concomitant]
     Indication: CONSTIPATION
     Dosage: UNK
     Route: 048
  13. FESIN                              /00023550/ [Concomitant]
     Indication: IRON DEFICIENCY ANAEMIA
     Dosage: UNK
     Route: 040
  14. RENAGEL                            /01459901/ [Concomitant]
     Indication: HYPERPHOSPHATAEMIA
     Dosage: UNK
     Route: 048
  15. PROSTANDIN                         /00501502/ [Concomitant]
     Indication: PERIPHERAL ARTERIAL OCCLUSIVE DISEASE
     Dosage: UNK
     Route: 040
  16. OXAROL [Concomitant]
     Indication: HYPERPARATHYROIDISM SECONDARY
     Dosage: UNK
     Route: 040

REACTIONS (3)
  - Muscle spasms [Not Recovered/Not Resolved]
  - Neuropathy peripheral [Not Recovered/Not Resolved]
  - Pneumonia [Recovered/Resolved]
